FAERS Safety Report 15289833 (Version 1)
Quarter: 2018Q3

REPORT INFORMATION
  Report Type: Spontaneous
  Country: US (occurrence: US)
  Receive Date: 20180804
  Receipt Date: 20180804
  Transmission Date: 20181010
  Serious: No
  Sender: FDA-Public Use
  Company Number: None

PATIENT
  Age: 76 Year
  Sex: Male

DRUGS (1)
  1. REPATHA [Suspect]
     Active Substance: EVOLOCUMAB
     Dates: start: 20150201, end: 20180804

REACTIONS (2)
  - Drug dose omission [None]
  - Wrong technique in product usage process [None]

NARRATIVE: CASE EVENT DATE: 20180804
